FAERS Safety Report 8215132-X (Version None)
Quarter: 2012Q1

REPORT INFORMATION
  Report Type: 
  Country: None (occurrence: None)
  Receive Date: 20120316
  Receipt Date: 20120312
  Transmission Date: 20120608
  Serious: Yes (Hospitalization)
  Sender: FDA-Public Use
  Company Number: FR-PFIZER INC-2010015243

PATIENT
  Age: 61 Year
  Sex: Male
  Weight: 80 kg

DRUGS (10)
  1. SOMATROPIN RDNA [Suspect]
     Dosage: 0.3 MG A DAY, 7 INJECTIONS A WEEK
     Dates: start: 20100213
  2. ACOMPLIA [Concomitant]
     Indication: OBESITY
     Dosage: UNK
     Route: 048
     Dates: start: 20071019
  3. ATORVASTATIN [Concomitant]
     Indication: DYSLIPIDAEMIA
     Dosage: UNK
     Route: 048
     Dates: start: 20021104
  4. ANDROTARDYL [Concomitant]
     Indication: HYPOGONADISM MALE
  5. SOMATROPIN RDNA [Suspect]
     Indication: GROWTH HORMONE DEFICIENCY
     Dosage: 0.3 MG A DAY, 7 INJECTIONS A WEEK
     Dates: start: 20040512, end: 20100119
  6. ANDROTARDYL [Concomitant]
     Indication: BLOOD LUTEINISING HORMONE DECREASED
     Dosage: UNK
     Route: 048
     Dates: start: 20090424
  7. ANDROTARDYL [Concomitant]
     Indication: BLOOD FOLLICLE STIMULATING HORMONE DECREASED
  8. LEVOTHYROXINE SODIUM [Concomitant]
     Indication: BLOOD THYROID STIMULATING HORMONE DECREASED
     Dosage: UNK
     Route: 048
     Dates: start: 20000824
  9. PERMIXON [Concomitant]
     Dosage: 2 DF, 1X/DAY
  10. HYDROCORTISONE [Concomitant]
     Indication: BLOOD CORTICOTROPHIN DECREASED
     Dosage: UNK
     Route: 048
     Dates: start: 20000824

REACTIONS (2)
  - AORTIC OCCLUSION [None]
  - THROMBOSIS [None]
